FAERS Safety Report 25213893 (Version 1)
Quarter: 2025Q2

REPORT INFORMATION
  Report Type: Spontaneous
  Country: US (occurrence: None)
  Receive Date: 20250417
  Receipt Date: 20250417
  Transmission Date: 20250716
  Serious: Yes (Other)
  Sender: FDA-CTU
  Company Number: None

PATIENT
  Age: 67 Year
  Sex: Female
  Weight: 42.18 kg

DRUGS (2)
  1. XEMBIFY [Suspect]
     Active Substance: HUMAN IMMUNOGLOBULIN G
     Indication: Immunodeficiency common variable
     Route: 058
     Dates: start: 20250117
  2. XEMBIFY [Concomitant]
     Active Substance: HUMAN IMMUNOGLOBULIN G
     Dates: start: 20200909

REACTIONS (5)
  - Injection site erythema [None]
  - Injection site pain [None]
  - Injection site pruritus [None]
  - Injection site warmth [None]
  - Injection site inflammation [None]

NARRATIVE: CASE EVENT DATE: 20250410
